FAERS Safety Report 7728629-3 (Version None)
Quarter: 2011Q3

REPORT INFORMATION
  Report Type: 
  Country: None (occurrence: None)
  Receive Date: 20110817
  Receipt Date: 20110601
  Transmission Date: 20111222
  Serious: Yes (Other)
  Sender: FDA-Public Use
  Company Number: 201110661

PATIENT
  Sex: Male

DRUGS (1)
  1. LIORESAL [Suspect]
     Indication: MUSCLE SPASTICITY
     Dosage: INTRATHECAL
     Route: 037

REACTIONS (9)
  - DIZZINESS [None]
  - RESPIRATORY DEPRESSION [None]
  - SOMNOLENCE [None]
  - MUSCULAR WEAKNESS [None]
  - RASH [None]
  - UPPER RESPIRATORY TRACT INFECTION [None]
  - FATIGUE [None]
  - CLOSTRIDIUM DIFFICILE COLITIS [None]
  - MALAISE [None]
